FAERS Safety Report 8994183 (Version 2)
Quarter: 2013Q1

REPORT INFORMATION
  Report Type: Spontaneous
  Country: US (occurrence: US)
  Receive Date: 20130102
  Receipt Date: 20130204
  Transmission Date: 20140127
  Serious: No
  Sender: FDA-Public Use
  Company Number: US-AMGEN-USASP2012081911

PATIENT
  Age: 76 Year
  Sex: Female

DRUGS (2)
  1. ENBREL [Suspect]
     Indication: PSORIATIC ARTHROPATHY
     Dosage: 50 MG, QWK
     Dates: start: 20060101
  2. REMICADE [Concomitant]
     Dosage: UNK
     Dates: start: 2012, end: 2012

REACTIONS (4)
  - Stress [Not Recovered/Not Resolved]
  - Rash [Unknown]
  - Adverse event [Unknown]
  - Psoriasis [Not Recovered/Not Resolved]
